FAERS Safety Report 8378668-7 (Version None)
Quarter: 2012Q2

REPORT INFORMATION
  Report Type: 
  Country: None (occurrence: None)
  Receive Date: 20120522
  Receipt Date: 20120516
  Transmission Date: 20120825
  Serious: Yes (Other)
  Sender: FDA-Public Use
  Company Number: PHHY2012BE043112

PATIENT
  Sex: Male

DRUGS (1)
  1. OMEPRAZOLE [Suspect]
     Dosage: 1 DF, DAILY
     Dates: start: 20100101

REACTIONS (6)
  - SWELLING FACE [None]
  - EAR PAIN [None]
  - BLINDNESS [None]
  - BLISTER [None]
  - ERYTHEMA [None]
  - VISUAL IMPAIRMENT [None]
